FAERS Safety Report 8693194 (Version 2)
Quarter: 2012Q4

REPORT INFORMATION
  Report Type: 
  Country: JP (occurrence: JP)
  Receive Date: 20120730
  Receipt Date: 20120917
  Transmission Date: 20130627
  Serious: Yes (Hospitalization)
  Sender: FDA-Public Use
  Company Number: JP-EISAI INC-E2090-02153-SPO-JP

PATIENT
  Age: 28 Year
  Sex: Male

DRUGS (2)
  1. EXCEGRAN [Suspect]
     Indication: EPILEPSY
     Route: 048
     Dates: start: 20120510, end: 20120524
  2. DEPAKENE R [Concomitant]
     Indication: EPILEPSY
     Route: 048
     Dates: start: 20120405, end: 20120510

REACTIONS (2)
  - Histiocytosis haematophagic [Recovering/Resolving]
  - Hepatic function abnormal [Recovering/Resolving]
